FAERS Safety Report 7632700-4 (Version None)
Quarter: 2011Q3

REPORT INFORMATION
  Report Type: 
  Country: None (occurrence: None)
  Receive Date: 20110725
  Receipt Date: 20101203
  Transmission Date: 20111222
  Serious: No
  Sender: FDA-Public Use
  Company Number: US-BRISTOL-MYERS SQUIBB COMPANY-15422702

PATIENT
  Age: 74 Year
  Sex: Male

DRUGS (4)
  1. ALTACE [Concomitant]
  2. ZOCOR [Concomitant]
  3. TOPROL-XL [Concomitant]
  4. COUMADIN [Suspect]
     Dosage: STARTED 6 WEEKS AGO
     Dates: start: 20100101

REACTIONS (2)
  - FLATULENCE [None]
  - PALPITATIONS [None]
